FAERS Safety Report 9190913 (Version 1)
Quarter: 2013Q1

REPORT INFORMATION
  Report Type: Spontaneous
  Country: FR (occurrence: FR)
  Receive Date: 20130326
  Receipt Date: 20130326
  Transmission Date: 20140127
  Serious: Yes (Hospitalization)
  Sender: FDA-Public Use
  Company Number: FR-GLAXOSMITHKLINE-B0875968A

PATIENT
  Age: 50 None
  Sex: Male

DRUGS (9)
  1. SERETIDE [Suspect]
     Indication: CHRONIC OBSTRUCTIVE PULMONARY DISEASE
     Dosage: .5MG TWICE PER DAY
     Route: 055
     Dates: start: 2011, end: 20130218
  2. NORVIR [Suspect]
     Indication: HIV INFECTION
     Dosage: 100MG PER DAY
     Route: 048
  3. PREZISTA [Suspect]
     Indication: HIV INFECTION
     Dosage: 800MG PER DAY
     Route: 048
  4. VENTOLINE [Concomitant]
  5. TRUVADA [Concomitant]
     Indication: HIV INFECTION
     Dosage: 1TAB PER DAY
     Route: 048
  6. LERCAN [Concomitant]
     Dosage: 200MG PER DAY
  7. ESIDREX [Concomitant]
     Dosage: 25MG PER DAY
     Route: 048
  8. ZOPICLONE [Concomitant]
     Dosage: 7.5MG PER DAY
     Route: 048
  9. SUBUTEX [Concomitant]
     Dosage: 8MG PER DAY
     Route: 048

REACTIONS (6)
  - Cushing^s syndrome [Not Recovered/Not Resolved]
  - Diabetes mellitus [Not Recovered/Not Resolved]
  - Blood cortisol decreased [Not Recovered/Not Resolved]
  - Lipohypertrophy [Unknown]
  - Hypertension [Unknown]
  - Drug interaction [Unknown]
